FAERS Safety Report 6931246-6 (Version None)
Quarter: 2010Q3

REPORT INFORMATION
  Report Type: 
  Country: None (occurrence: None)
  Receive Date: 20100816
  Receipt Date: 20100809
  Transmission Date: 20110219
  Serious: Yes (Other)
  Sender: FDA-Public Use
  Company Number: 2010SP043169

PATIENT
  Age: 71 Year
  Sex: Female
  Weight: 61.5 kg

DRUGS (2)
  1. POSACONAZOLE [Suspect]
     Indication: BRONCHOPULMONARY ASPERGILLOSIS
     Dosage: 400 MG;BID;PO
     Route: 048
     Dates: start: 20091030, end: 20091120
  2. WARFARIN SODIUM [Concomitant]

REACTIONS (3)
  - CONDITION AGGRAVATED [None]
  - DYSPNOEA [None]
  - PSORIASIS [None]
